FAERS Safety Report 5635605-3 (Version None)
Quarter: 2008Q1

REPORT INFORMATION
  Report Type: 
  Country: None (occurrence: None)
  Receive Date: 20080222
  Receipt Date: 20080212
  Transmission Date: 20080703
  Serious: Yes (Other)
  Sender: FDA-Public Use
  Company Number: US-ELI_LILLY_AND_COMPANY-US200711003192

PATIENT
  Sex: Male
  Weight: 89.342 kg

DRUGS (14)
  1. HUMALOG MIX 75/25 [Suspect]
  2. HUMALOG MIX 75/25 [Suspect]
  3. ACULAR [Concomitant]
  4. ZYMAR [Concomitant]
  5. ACTOS [Concomitant]
     Dosage: 30 MG, UNK
  6. GLUCOTROL [Concomitant]
     Dosage: 10 MG, 2/D
  7. COZAAR [Concomitant]
  8. ZOCOR [Concomitant]
     Dosage: 80 MG, EACH EVENING
  9. FLOMAX [Concomitant]
  10. ZANTAC 150 [Concomitant]
  11. LASIX [Concomitant]
     Dosage: 20 MG, DAILY (1/D)
  12. PRILOSEC [Concomitant]
     Dosage: 20 MG, DAILY (1/D)
  13. LOPRESSOR [Concomitant]
     Dosage: 5 MG, DAILY (1/D)
  14. ASPIRIN [Concomitant]
     Dosage: 81 MG, DAILY (1/D)

REACTIONS (6)
  - BLOOD GLUCOSE INCREASED [None]
  - CATARACT [None]
  - CORONARY ARTERY BYPASS [None]
  - DRY EYE [None]
  - EYE DISORDER [None]
  - EYE HAEMORRHAGE [None]
